FAERS Safety Report 17570630 (Version 1)
Quarter: 2020Q1

REPORT INFORMATION
  Report Type: Spontaneous
  Country: CA (occurrence: CA)
  Receive Date: 20200323
  Receipt Date: 20200323
  Transmission Date: 20200409
  Serious: Yes (Other)
  Sender: FDA-Public Use
  Company Number: CA-TEVA-2020-CA-1210779

PATIENT
  Age: 29 Year
  Sex: Female

DRUGS (3)
  1. ESTRADIOL. [Suspect]
     Active Substance: ESTRADIOL
     Indication: HORMONE THERAPY
     Dosage: 8 MILLIGRAM DAILY;
     Route: 060
  2. FINASTERIDE. [Suspect]
     Active Substance: FINASTERIDE
     Indication: HORMONE THERAPY
     Route: 065
  3. CYPROTERONE [Suspect]
     Active Substance: CYPROTERONE
     Indication: HORMONE THERAPY
     Dosage: 25 MILLIGRAM DAILY;
     Route: 065

REACTIONS (2)
  - Off label use [Unknown]
  - Ventricular extrasystoles [Unknown]
